FAERS Safety Report 5492401-8 (Version None)
Quarter: 2007Q4

REPORT INFORMATION
  Report Type: 
  Country: None (occurrence: None)
  Receive Date: 20071015
  Receipt Date: 20070731
  Transmission Date: 20080405
  Serious: No
  Sender: FDA-Public Use
  Company Number: 2007SP002693

PATIENT
  Age: 46 Year
  Sex: Male
  Weight: 81.6475 kg

DRUGS (4)
  1. LUNESTA [Suspect]
     Indication: INSOMNIA
     Dosage: 3 MG; ORAL, 3 MG 1X; ORAL; ORAL
     Route: 048
     Dates: start: 20060730, end: 20070730
  2. LUNESTA [Suspect]
     Indication: INSOMNIA
     Dosage: 3 MG; ORAL, 3 MG 1X; ORAL; ORAL
     Route: 048
     Dates: start: 20060101
  3. LUNESTA [Suspect]
     Indication: INSOMNIA
     Dosage: 3 MG; ORAL, 3 MG 1X; ORAL; ORAL
     Route: 048
     Dates: start: 20070101
  4. ATORVASTATIN CALCIUM [Concomitant]

REACTIONS (1)
  - INSOMNIA [None]
